FAERS Safety Report 6647856-X (Version None)
Quarter: 2010Q1

REPORT INFORMATION
  Report Type: 
  Country: None (occurrence: None)
  Receive Date: 20100324
  Receipt Date: 20100315
  Transmission Date: 20100710
  Serious: Yes (Hospitalization, Other)
  Sender: FDA-Public Use
  Company Number: FR-JNJFOC-20091107054

PATIENT
  Sex: Female
  Weight: 53 kg

DRUGS (9)
  1. REMINYL LP [Suspect]
     Indication: DEMENTIA ALZHEIMER'S TYPE
     Route: 048
  2. REMINYL LP [Suspect]
     Route: 048
  3. REMINYL LP [Suspect]
     Route: 048
  4. REMINYL LP [Suspect]
     Route: 048
  5. HYDROCHLOROTHIAZIDE [Concomitant]
     Route: 065
  6. BISOPROLOL [Concomitant]
     Route: 048
  7. FLUDEX [Concomitant]
     Route: 048
  8. DICETEL [Concomitant]
     Route: 048
  9. MOVICOL [Concomitant]
     Route: 048

REACTIONS (12)
  - APHASIA [None]
  - BALANCE DISORDER [None]
  - BLOOD PRESSURE DECREASED [None]
  - CONFUSIONAL STATE [None]
  - DRUG ADMINISTRATION ERROR [None]
  - HEADACHE [None]
  - HYPERTENSION [None]
  - ISCHAEMIC STROKE [None]
  - LOSS OF CONSCIOUSNESS [None]
  - OVERDOSE [None]
  - VISUAL IMPAIRMENT [None]
  - VOMITING [None]
